FAERS Safety Report 8123606-5 (Version None)
Quarter: 2012Q1

REPORT INFORMATION
  Report Type: 
  Country: None (occurrence: None)
  Receive Date: 20120208
  Receipt Date: 20120203
  Transmission Date: 20120608
  Serious: No
  Sender: FDA-Public Use
  Company Number: PHHY2012JP001058

PATIENT
  Sex: Male
  Weight: 64 kg

DRUGS (8)
  1. PRAVASTATIN SODIUM [Suspect]
     Indication: HYPERLIPIDAEMIA
     Route: 048
     Dates: start: 20110702, end: 20111228
  2. MICARDIS [Suspect]
     Indication: HYPERTENSION
     Dosage: 40 MG, UNK
     Route: 048
     Dates: start: 20050702, end: 20111228
  3. REBAMIPIDE [Suspect]
     Indication: GASTRITIS PROPHYLAXIS
     Route: 048
     Dates: start: 20110820, end: 20111228
  4. AMLODIPINE [Concomitant]
     Indication: HYPERTENSION
     Dosage: 3.25 MG, UNK
     Route: 048
     Dates: start: 20050702
  5. TREBIANOM [Suspect]
     Indication: HYPERURICAEMIA
     Route: 048
     Dates: start: 20110514, end: 20111228
  6. CELECOXIB [Suspect]
     Route: 048
     Dates: start: 20110820, end: 20111228
  7. RASILEZ [Suspect]
     Indication: HYPERTENSION
     Dosage: 150 MG, UNK
     Route: 048
     Dates: start: 20101114, end: 20111228
  8. ARYTHMET [Concomitant]
     Indication: HYPERURICAEMIA
     Route: 048
     Dates: start: 20050702

REACTIONS (3)
  - BLOOD UREA INCREASED [None]
  - BLOOD CREATININE INCREASED [None]
  - BLOOD TRIGLYCERIDES INCREASED [None]
